FAERS Safety Report 5048898-0 (Version None)
Quarter: 2006Q3

REPORT INFORMATION
  Report Type: 
  Country: None (occurrence: None)
  Receive Date: 20060712
  Receipt Date: 20050728
  Transmission Date: 20061208
  Serious: No
  Sender: FDA-Public Use
  Company Number: US-GLAXOSMITHKLINE-A0568131A

PATIENT
  Age: 52 Year
  Sex: Male

DRUGS (9)
  1. IMITREX [Suspect]
     Indication: MIGRAINE
     Route: 048
     Dates: start: 20000101
  2. IMITREX [Concomitant]
  3. CLONAZEPAM [Concomitant]
  4. LORAZEPAM [Concomitant]
  5. AMBIEN [Concomitant]
  6. FLUOXETINE HCL [Concomitant]
  7. OXYCODONE HCL [Concomitant]
  8. SEROQUEL [Concomitant]
  9. PAIN MEDICATION [Concomitant]

REACTIONS (7)
  - DRUG ADMINISTRATION ERROR [None]
  - FALL [None]
  - FEELING DRUNK [None]
  - GAIT DISTURBANCE [None]
  - HEAD DISCOMFORT [None]
  - NIGHTMARE [None]
  - VOMITING [None]
